FAERS Safety Report 9310732 (Version 2)
Quarter: 2013Q2

REPORT INFORMATION
  Report Type: Spontaneous
  Country: CN (occurrence: CN)
  Receive Date: 20130528
  Receipt Date: 20130605
  Transmission Date: 20140414
  Serious: Yes (Hospitalization, Other)
  Sender: FDA-Public Use
  Company Number: CN-MERCK-1305CHN013853

PATIENT
  Age: 4 Year
  Sex: Male
  Weight: 22 kg

DRUGS (2)
  1. SINGULAIR [Suspect]
     Indication: ASTHMA
     Dosage: 4 MG, QD
     Route: 048
  2. SERETIDE [Concomitant]
     Indication: ASTHMA
     Route: 048

REACTIONS (5)
  - Liver injury [Recovering/Resolving]
  - Penis disorder [Unknown]
  - Mitral valve incompetence [Unknown]
  - Hepatic steatosis [Unknown]
  - Hepatic function abnormal [Unknown]
